FAERS Safety Report 6508255-4 (Version None)
Quarter: 2009Q4

REPORT INFORMATION
  Report Type: 
  Country: None (occurrence: None)
  Receive Date: 20091201
  Receipt Date: 20090730
  Transmission Date: 20100525
  Serious: Yes (Hospitalization)
  Sender: FDA-Public Use
  Company Number: 2009-195832-NL

PATIENT
  Age: 47 Year
  Sex: Female
  Weight: 95.3 kg

DRUGS (6)
  1. NUVARING [Suspect]
     Indication: CONTRACEPTION
     Dosage: 1 DF; VAG
     Route: 067
     Dates: start: 20051001, end: 20060501
  2. TYLENOL-500 [Concomitant]
  3. MOTRIN [Concomitant]
  4. CALCIUM [Concomitant]
  5. FISH OIL [Concomitant]
  6. SYNTHROID [Concomitant]

REACTIONS (8)
  - DEEP VEIN THROMBOSIS [None]
  - EUSTACHIAN TUBE DYSFUNCTION [None]
  - HEPATIC LESION [None]
  - NODULE [None]
  - PHLEBITIS [None]
  - PULMONARY EMBOLISM [None]
  - RESPIRATORY TRACT INFECTION [None]
  - TENDONITIS [None]
